FAERS Safety Report 25773516 (Version 1)
Quarter: 2025Q3

REPORT INFORMATION
  Report Type: Spontaneous
  Country: US (occurrence: None)
  Receive Date: 20250906
  Receipt Date: 20250906
  Transmission Date: 20251020
  Serious: Yes (Hospitalization, Other)
  Sender: FDA-CTU
  Company Number: None

PATIENT
  Age: 39 Year
  Sex: Female
  Weight: 74.7 kg

DRUGS (3)
  1. SEMAGLUTIDE [Suspect]
     Active Substance: SEMAGLUTIDE
     Indication: Weight control
     Route: 058
     Dates: start: 20250814, end: 20250815
  2. LEVOTHYROXINE [Concomitant]
     Active Substance: LEVOTHYROXINE
  3. Vitamin D/K [Concomitant]

REACTIONS (6)
  - Treatment noncompliance [None]
  - Abdominal pain upper [None]
  - Dyspnoea [None]
  - Cholelithiasis [None]
  - Cholestasis [None]
  - Cholecystitis [None]

NARRATIVE: CASE EVENT DATE: 20250815
